FAERS Safety Report 9269564 (Version 3)
Quarter: 2013Q2

REPORT INFORMATION
  Report Type: Spontaneous
  Country: AU (occurrence: AU)
  Receive Date: 20130503
  Receipt Date: 20130628
  Transmission Date: 20140414
  Serious: Yes (Death, Hospitalization, Other)
  Sender: FDA-Public Use
  Company Number: AU-PFIZER INC-2013133713

PATIENT
  Age: 47 Year
  Sex: Female

DRUGS (3)
  1. REVATIO [Suspect]
     Indication: EISENMENGER^S SYNDROME
     Dosage: 40 MG, 3X/DAY
     Route: 048
     Dates: start: 2011
  2. REVATIO [Suspect]
     Dosage: 20 MG, 3X/DAY
     Route: 048
     Dates: start: 2012
  3. BOSENTAN [Concomitant]
     Indication: EISENMENGER^S SYNDROME
     Dosage: 125 MG, 2X/DAY
     Route: 048
     Dates: start: 2006

REACTIONS (3)
  - Eisenmenger^s syndrome [Fatal]
  - Right ventricular failure [Unknown]
  - Hypoxia [Unknown]
